FAERS Safety Report 4444072-7 (Version None)
Quarter: 2004Q3

REPORT INFORMATION
  Report Type: 
  Country: None (occurrence: None)
  Receive Date: 20040729
  Receipt Date: 20040202
  Transmission Date: 20050211
  Serious: Yes (Hospitalization)
  Sender: FDA-Public Use
  Company Number: US-JNJFOC-20031202292

PATIENT
  Age: 67 Year
  Sex: Female

DRUGS (1)
  1. RISPERDAL [Suspect]
     Indication: PSYCHOTIC DISORDER
     Dosage: 2 MG 2 IN 1 DAY ORAL
     Route: 048
     Dates: end: 20031203

REACTIONS (1)
  - INSOMNIA [None]
